FAERS Safety Report 15890883 (Version 1)
Quarter: 2019Q1

REPORT INFORMATION
  Report Type: Report from Study
  Country: PL (occurrence: PL)
  Receive Date: 20190130
  Receipt Date: 20190130
  Transmission Date: 20190417
  Serious: Yes (Other)
  Sender: FDA-Public Use
  Company Number: PL-CHIESI USA, INC.-PL-2019CHI000025

PATIENT
  Age: 1 Day
  Sex: Male
  Weight: 2.3 kg

DRUGS (4)
  1. CAFFEINE CITRATE. [Concomitant]
     Active Substance: CAFFEINE CITRATE
     Indication: INFANTILE APNOEA
     Dosage: 46 MG, QD (NEXT DAYS 5-8MG/KG DAILY)
     Dates: start: 20180729, end: 20180806
  2. AMPICILLIN [Concomitant]
     Active Substance: AMPICILLIN
     Indication: NEONATAL INFECTION
     Dosage: 240 MG, QD
     Dates: start: 20180728, end: 20180729
  3. GENTAMYCIN                         /00047101/ [Concomitant]
     Active Substance: GENTAMICIN
     Indication: NEONATAL INFECTION
     Dosage: 9 MG, QD
     Dates: start: 20180728, end: 20180729
  4. CUROSURF [Suspect]
     Active Substance: PORACTANT ALFA
     Indication: NEONATAL RESPIRATORY DISTRESS SYNDROME
     Dosage: 360 MG, SINGLE
     Route: 039
     Dates: start: 20180729, end: 20180729

REACTIONS (3)
  - Bradycardia neonatal [Recovered/Resolved]
  - Neonatal hypoxia [Recovered/Resolved]
  - Product administration error [Recovered/Resolved]

NARRATIVE: CASE EVENT DATE: 20180729
